FAERS Safety Report 22119071 (Version 1)
Quarter: 2023Q1

REPORT INFORMATION
  Report Type: Spontaneous
  Country: US (occurrence: US)
  Receive Date: 20230321
  Receipt Date: 20230321
  Transmission Date: 20230418
  Serious: Yes (Other)
  Sender: FDA-Public Use
  Company Number: US-ROCHE-3312527

PATIENT
  Age: 52 Year
  Sex: Male

DRUGS (5)
  1. ERLOTINIB [Suspect]
     Active Substance: ERLOTINIB
     Indication: Lung adenocarcinoma stage IV
     Dosage: UNK, UNKNOWN FREQ.
     Route: 065
  2. ERLOTINIB [Suspect]
     Active Substance: ERLOTINIB
     Indication: Malignant pleural effusion
  3. PEMETREXED [Concomitant]
     Active Substance: PEMETREXED
     Indication: Lung adenocarcinoma stage IV
     Dosage: UNK UNK, OTHER (FOR 4 CYCLES )
     Route: 065
  4. CRIZOTINIB [Concomitant]
     Active Substance: CRIZOTINIB
     Indication: Lung adenocarcinoma stage IV
     Dosage: UNK UNK, UNKNOWN FREQ.
     Route: 065
  5. CARBOPLATIN [Concomitant]
     Active Substance: CARBOPLATIN
     Indication: Lung adenocarcinoma stage IV
     Dosage: UNK UNK, OTHER (FOR 4 CYCLES )
     Route: 065

REACTIONS (1)
  - Malignant neoplasm progression [Unknown]
